FAERS Safety Report 10058460 (Version 1)
Quarter: 2014Q2

REPORT INFORMATION
  Report Type: Spontaneous
  Country: ES (occurrence: ES)
  Receive Date: 20140404
  Receipt Date: 20140404
  Transmission Date: 20141212
  Serious: Yes (Hospitalization)
  Sender: FDA-Public Use
  Company Number: ES-SA-2014SA037460

PATIENT
  Age: 39 Year
  Sex: Male

DRUGS (7)
  1. CLEXANE [Suspect]
     Indication: PRODUCT USED FOR UNKNOWN INDICATION
     Dosage: 40MG SC
     Route: 058
     Dates: start: 20130429, end: 20130509
  2. PANTOPRAZOLE [Suspect]
     Indication: PROPHYLAXIS AGAINST GASTROINTESTINAL ULCER
     Dosage: 1CP
     Route: 048
     Dates: start: 20130427, end: 20130506
  3. GABAPENTIN [Suspect]
     Indication: PAIN
     Dosage: 300MG/12H
     Route: 048
     Dates: start: 20130430, end: 20130509
  4. METAMIZOLE [Suspect]
     Indication: PAIN
     Dosage: 2GR/8H
     Route: 042
     Dates: start: 20130427, end: 20130509
  5. DEXKETOPROFEN [Suspect]
     Indication: PAIN
     Dosage: 50MG/8H
     Route: 042
     Dates: start: 20130427, end: 20130508
  6. MORFINA [Concomitant]
     Indication: PAIN
     Dosage: 10MG CADA 12H
     Route: 048
     Dates: start: 20130506, end: 20130509
  7. PREDNISONA [Concomitant]
     Indication: PSORIASIS
     Dosage: EN DOSIS DESCENDENTE DESDE 50MG HASTA 5MG AL ALTA
     Route: 048
     Dates: start: 20130427

REACTIONS (1)
  - Hepatitis [Recovered/Resolved]
